FAERS Safety Report 17365467 (Version 1)
Quarter: 2020Q1

REPORT INFORMATION
  Report Type: Spontaneous
  Country: JP (occurrence: JP)
  Receive Date: 20200204
  Receipt Date: 20200204
  Transmission Date: 20200409
  Serious: Yes (Other)
  Sender: FDA-Public Use
  Company Number: JP-MYLANLABS-2019M1126539

PATIENT
  Age: 83 Year
  Sex: Male

DRUGS (1)
  1. EPIRUBICIN HYDROCHLORIDE INJ. 10MG ^NK^ [Suspect]
     Active Substance: EPIRUBICIN HYDROCHLORIDE
     Indication: HEPATOCELLULAR CARCINOMA
     Dosage: 30 MILLIGRAM
     Route: 025
     Dates: start: 20191204, end: 20191204

REACTIONS (1)
  - Acute respiratory distress syndrome [Recovered/Resolved]

NARRATIVE: CASE EVENT DATE: 20191215
